FAERS Safety Report 25615074 (Version 1)
Quarter: 2025Q3

REPORT INFORMATION
  Report Type: Spontaneous
  Country: AR (occurrence: AR)
  Receive Date: 20250729
  Receipt Date: 20250729
  Transmission Date: 20251020
  Serious: Yes (Disabling)
  Sender: SANDOZ
  Company Number: AR-SANDOZ-SDZ2025AR015760

PATIENT
  Age: 20 Year
  Sex: Female

DRUGS (1)
  1. HYRIMOZ [Suspect]
     Active Substance: ADALIMUMAB-ADAZ
     Indication: Juvenile idiopathic arthritis
     Route: 058

REACTIONS (8)
  - Pain in extremity [Not Recovered/Not Resolved]
  - Asthenia [Not Recovered/Not Resolved]
  - Loss of personal independence in daily activities [Not Recovered/Not Resolved]
  - Hypoaesthesia [Not Recovered/Not Resolved]
  - Sleep disorder due to a general medical condition [Not Recovered/Not Resolved]
  - Pain [Not Recovered/Not Resolved]
  - Product availability issue [Unknown]
  - Therapy cessation [Unknown]

NARRATIVE: CASE EVENT DATE: 20250306
